FAERS Safety Report 6835723-8 (Version None)
Quarter: 2010Q3

REPORT INFORMATION
  Report Type: 
  Country: None (occurrence: None)
  Receive Date: 20100713
  Receipt Date: 20100701
  Transmission Date: 20110219
  Serious: Yes (Other)
  Sender: FDA-Public Use
  Company Number: US-PFIZER INC-2010059480

PATIENT
  Sex: Female
  Weight: 56 kg

DRUGS (9)
  1. ZOLOFT [Suspect]
     Indication: ANXIETY
     Dosage: 12.5MG HALF TABLET DAILY
     Route: 048
     Dates: start: 20091201
  2. ZOLOFT [Suspect]
     Dosage: 25 MG DAILY
     Route: 048
  3. ZOLOFT [Suspect]
     Dosage: 50 MG DAILY
     Route: 048
  4. ZOLOFT [Suspect]
     Dosage: 100 MG DAILY
     Route: 048
     Dates: end: 20100201
  5. ZOLOFT [Suspect]
     Dosage: 50 MG, 1X/DAY
     Dates: start: 20091222, end: 20100326
  6. CYMBALTA [Suspect]
     Indication: DEPRESSION
     Dosage: UNK
     Route: 048
     Dates: start: 20100201, end: 20100401
  7. XANAX [Concomitant]
     Indication: ANXIETY
     Dosage: 0.5 MG, 2X/DAY
     Route: 048
     Dates: start: 20090101
  8. XANAX [Concomitant]
     Indication: SLEEP DISORDER
  9. ALPRAZOLAM [Concomitant]
     Dosage: 0.5 MG/DAY

REACTIONS (7)
  - ABNORMAL BEHAVIOUR [None]
  - AGGRESSION [None]
  - ANGER [None]
  - DECREASED APPETITE [None]
  - EMOTIONAL DISORDER [None]
  - LOSS OF LIBIDO [None]
  - WEIGHT DECREASED [None]
